FAERS Safety Report 5847011-7 (Version None)
Quarter: 2008Q3

REPORT INFORMATION
  Report Type: 
  Country: None (occurrence: None)
  Receive Date: 20080815
  Receipt Date: 20080805
  Transmission Date: 20090109
  Serious: Yes (Other)
  Sender: FDA-Public Use
  Company Number: US-PFIZER INC-2008066561

PATIENT
  Sex: Female

DRUGS (1)
  1. LYRICA [Suspect]

REACTIONS (6)
  - ABASIA [None]
  - ADVERSE DRUG REACTION [None]
  - CHEST DISCOMFORT [None]
  - DYSPNOEA [None]
  - IMPAIRED DRIVING ABILITY [None]
  - PAIN [None]
